FAERS Safety Report 21315151 (Version 2)
Quarter: 2023Q1

REPORT INFORMATION
  Report Type: Spontaneous
  Country: US (occurrence: US)
  Receive Date: 20220909
  Receipt Date: 20230310
  Transmission Date: 20230418
  Serious: Yes (Hospitalization, Other)
  Sender: FDA-Public Use
  Company Number: US-PFIZER INC-202201142696

PATIENT
  Age: 61 Year
  Sex: Male

DRUGS (4)
  1. XELJANZ [Suspect]
     Active Substance: TOFACITINIB CITRATE
     Indication: Rheumatoid arthritis
     Dosage: 5 MG, 1X/DAY
     Route: 048
     Dates: start: 20160112, end: 201602
  2. XELJANZ [Suspect]
     Active Substance: TOFACITINIB CITRATE
     Dosage: 5 MG, 2X/DAY
     Route: 048
     Dates: start: 20160209, end: 20180531
  3. XELJANZ [Suspect]
     Active Substance: TOFACITINIB CITRATE
     Dosage: 5 MG, 1X/DAY
     Route: 048
     Dates: start: 20180730, end: 201811
  4. XELJANZ [Suspect]
     Active Substance: TOFACITINIB CITRATE
     Dosage: 5 MG, 2X/DAY
     Route: 048
     Dates: start: 20181119

REACTIONS (30)
  - Deep vein thrombosis [Unknown]
  - Thrombosis [Unknown]
  - Pneumonia [Unknown]
  - Transient ischaemic attack [Unknown]
  - Pulmonary embolism [Unknown]
  - Atrial fibrillation [Unknown]
  - Congestive cardiomyopathy [Unknown]
  - Ventricular fibrillation [Unknown]
  - Tricuspid valve incompetence [Unknown]
  - Mitral valve thickening [Unknown]
  - Mitral valve incompetence [Unknown]
  - Ventricular tachycardia [Unknown]
  - Ejection fraction decreased [Unknown]
  - Aortic aneurysm [Unknown]
  - Left ventricular hypertrophy [Unknown]
  - Abdominal discomfort [Unknown]
  - Rash [Unknown]
  - Supraventricular extrasystoles [Unknown]
  - Dyspnoea exertional [Unknown]
  - Sinus bradycardia [Unknown]
  - Aortic dilatation [Unknown]
  - Dyspnoea [Recovering/Resolving]
  - Left atrial enlargement [Unknown]
  - Atrophy [Unknown]
  - Mental status changes [Unknown]
  - Ischaemia [Unknown]
  - Ventricular extrasystoles [Unknown]
  - Arteriosclerosis [Unknown]
  - Ventricular extrasystoles [Unknown]
  - Left ventricular dysfunction [Unknown]

NARRATIVE: CASE EVENT DATE: 20160101
